FAERS Safety Report 10017712 (Version 1)
Quarter: 2014Q1

REPORT INFORMATION
  Report Type: Spontaneous
  Country: US (occurrence: US)
  Receive Date: 20140318
  Receipt Date: 20140318
  Transmission Date: 20141002
  Serious: No
  Sender: FDA-Public Use
  Company Number: US-BRISTOL-MYERS SQUIBB COMPANY-17449745

PATIENT
  Age: 49 Year
  Sex: Male
  Weight: 90.25 kg

DRUGS (6)
  1. ERBITUX [Suspect]
     Indication: COLON CANCER
  2. IRINOTECAN [Suspect]
     Indication: COLON CANCER
  3. NEURONTIN [Concomitant]
  4. COLACE [Concomitant]
  5. BISACODYL [Concomitant]
  6. PERCOCET [Concomitant]

REACTIONS (1)
  - Dermatitis acneiform [Unknown]
